FAERS Safety Report 13876990 (Version 3)
Quarter: 2017Q4

REPORT INFORMATION
  Report Type: Report from Study
  Country: GB (occurrence: GB)
  Receive Date: 20170817
  Receipt Date: 20171106
  Transmission Date: 20180320
  Serious: Yes (Death, Hospitalization, Other)
  Sender: FDA-Public Use
  Company Number: GB-AMGEN-GBRSL2017095547

PATIENT
  Age: 77 Year
  Sex: Male

DRUGS (1)
  1. ARANESP [Suspect]
     Active Substance: DARBEPOETIN ALFA
     Indication: PRODUCT USED FOR UNKNOWN INDICATION
     Dosage: 60 MUG, UNK
     Route: 065

REACTIONS (10)
  - Rash [Unknown]
  - Renal failure [Not Recovered/Not Resolved]
  - Diabetic complication [Not Recovered/Not Resolved]
  - Skin infection [Unknown]
  - Localised infection [Unknown]
  - Cardiac failure [Not Recovered/Not Resolved]
  - Death [Fatal]
  - Diabetes mellitus [Unknown]
  - Malaise [Unknown]
  - Peripheral swelling [Unknown]

NARRATIVE: CASE EVENT DATE: 20171031
